FAERS Safety Report 5545572-9 (Version None)
Quarter: 2007Q4

REPORT INFORMATION
  Report Type: 
  Country: None (occurrence: None)
  Receive Date: 20071211
  Receipt Date: 20071207
  Transmission Date: 20080405
  Serious: Yes (Hospitalization, Other)
  Sender: FDA-Public Use
  Company Number: BR-BRISTOL-MYERS SQUIBB COMPANY-14009534

PATIENT
  Age: 73 Year
  Sex: Female
  Weight: 62 kg

DRUGS (6)
  1. APROVEL TABS 150 MG [Suspect]
     Indication: HYPERTENSION
     Dosage: 05-07(DOSE UKN) 2 TAB IN MORNING AND 2 IN NIGHT; DOSAGE FORM = TABS;(2 TAB/D) DEC-2007 TO ONGOING.
     Route: 048
     Dates: start: 20050101
  2. ALENIA [Concomitant]
     Indication: LUNG DISORDER
     Dosage: 1 DOSAGE FORM = TID/QID
     Route: 055
     Dates: start: 20071101, end: 20071206
  3. ATROVENT [Concomitant]
     Indication: LUNG DISORDER
     Dates: start: 20020101
  4. INDAPEN [Concomitant]
     Indication: HYPERTENSION
     Dosage: DOSAGE FORM = TAB
     Route: 048
     Dates: start: 20020101
  5. LEXOTAN [Concomitant]
     Indication: NERVOUS SYSTEM DISORDER
     Dosage: DOSAGEFORM=TAB
     Route: 048
     Dates: start: 19970101
  6. MUCOSOLVAN [Concomitant]
     Indication: LUNG DISORDER
     Dosage: QID
     Dates: start: 20020101

REACTIONS (4)
  - AMNESIA [None]
  - CONVULSION [None]
  - MEMORY IMPAIRMENT [None]
  - OVERDOSE [None]
